FAERS Safety Report 10929649 (Version 1)
Quarter: 2015Q1

REPORT INFORMATION
  Report Type: Spontaneous
  Country: US (occurrence: US)
  Receive Date: 20150319
  Receipt Date: 20150319
  Transmission Date: 20150721
  Serious: Yes (Other)
  Sender: FDA-Public Use
  Company Number: US-PFIZER INC-2015091898

PATIENT
  Age: 50 Year
  Sex: Female
  Weight: 151 kg

DRUGS (3)
  1. LYRICA [Suspect]
     Active Substance: PREGABALIN
     Dosage: 100 MG, UNK
  2. LYRICA [Suspect]
     Active Substance: PREGABALIN
     Dosage: 150 MG, UNK
     Dates: end: 201412
  3. LYRICA [Suspect]
     Active Substance: PREGABALIN
     Indication: PAIN
     Dosage: IN 2009 OR 2010 AT 75 MG, UNK

REACTIONS (4)
  - Lymphadenopathy [Unknown]
  - Pulmonary mass [Unknown]
  - Gait disturbance [Not Recovered/Not Resolved]
  - Insomnia [Not Recovered/Not Resolved]
